FAERS Safety Report 23822414 (Version 1)
Quarter: 2024Q2

REPORT INFORMATION
  Report Type: Spontaneous
  Country: US (occurrence: None)
  Receive Date: 20240504
  Receipt Date: 20240504
  Transmission Date: 20240716
  Serious: No
  Sender: FDA-Public Use
  Company Number: None

PATIENT
  Age: 66 Year
  Sex: Male
  Weight: 102 kg

DRUGS (2)
  1. RITUXAN [Suspect]
     Active Substance: RITUXIMAB
     Indication: Lymphoma
     Dates: start: 20230228, end: 20230412
  2. PREDNISONE [Suspect]
     Active Substance: PREDNISONE
     Indication: Chemotherapy
     Dosage: 30 MG EVERY DAY PO
     Route: 048
     Dates: start: 2023, end: 2023

REACTIONS (8)
  - Confusional state [None]
  - Hyperglycaemia [None]
  - Infusion related reaction [None]
  - Heart rate increased [None]
  - Therapy interrupted [None]
  - Body temperature increased [None]
  - Chills [None]
  - Blood pressure systolic increased [None]

NARRATIVE: CASE EVENT DATE: 20230228
